FAERS Safety Report 24906578 (Version 1)
Quarter: 2025Q1

REPORT INFORMATION
  Report Type: Spontaneous
  Country: CN (occurrence: CN)
  Receive Date: 20250130
  Receipt Date: 20250130
  Transmission Date: 20250409
  Serious: Yes (Life-Threatening)
  Sender: PFIZER
  Company Number: CN-TAKEDA-2025TUS009005

PATIENT
  Age: 66 Year
  Sex: Female
  Weight: 61 kg

DRUGS (1)
  1. ADCETRIS [Suspect]
     Active Substance: BRENTUXIMAB VEDOTIN
     Indication: T-cell lymphoma
     Dosage: 150 MILLIGRAM, QD
     Route: 041
     Dates: start: 20250105, end: 20250105

REACTIONS (2)
  - Chest discomfort [Recovered/Resolved]
  - Heart rate increased [Recovered/Resolved]

NARRATIVE: CASE EVENT DATE: 20250105
